FAERS Safety Report 9836878 (Version 2)
Quarter: 2014Q1

REPORT INFORMATION
  Report Type: Spontaneous
  Country: US (occurrence: US)
  Receive Date: 20140123
  Receipt Date: 20140203
  Transmission Date: 20141002
  Serious: No
  Sender: FDA-Public Use
  Company Number: US-PFIZER INC-2014017103

PATIENT
  Sex: Male

DRUGS (7)
  1. NEURONTIN [Suspect]
     Indication: MULTIPLE SCLEROSIS
     Dosage: 100 MG, 1X/DAY
     Route: 048
  2. NEURONTIN [Suspect]
     Dosage: UNK
  3. GABAPENTIN [Suspect]
     Indication: MULTIPLE SCLEROSIS
     Dosage: 100 MG, 1X/DAY
     Route: 048
  4. GABAPENTIN [Suspect]
     Dosage: 100 MG, 1X/DAY
     Route: 048
  5. GABAPENTIN [Suspect]
     Indication: MULTIPLE SCLEROSIS
     Dosage: 100 MG, 1X/DAY
     Route: 048
  6. GABAPENTIN [Suspect]
     Dosage: 500 MG (100MG CAPSULE IN MORNING, 100MG AT LUNCH AND 3 CAPSULES OF 100MG AT BEDTIME), PER DAY
     Route: 048
  7. GABAPENTIN [Suspect]
     Dosage: UNK

REACTIONS (5)
  - Drug ineffective for unapproved indication [Unknown]
  - Malaise [Unknown]
  - Pre-existing condition improved [Unknown]
  - Therapeutic response unexpected [Unknown]
  - Abdominal discomfort [Unknown]
